FAERS Safety Report 9099474 (Version 1)
Quarter: 2013Q1

REPORT INFORMATION
  Report Type: Spontaneous
  Country: BR (occurrence: BR)
  Receive Date: 20130214
  Receipt Date: 20130214
  Transmission Date: 20140127
  Serious: Yes (Hospitalization)
  Sender: FDA-Public Use
  Company Number: BR-ASTRAZENECA-2013SE09045

PATIENT
  Age: 736 Month
  Sex: Male
  Weight: 102 kg

DRUGS (2)
  1. CRESTOR [Suspect]
     Indication: BLOOD CHOLESTEROL INCREASED
     Route: 048
  2. DIOVAN HCT [Concomitant]
     Route: 048

REACTIONS (1)
  - Coronary artery occlusion [Recovered/Resolved]
